FAERS Safety Report 8066388-8 (Version None)
Quarter: 2012Q1

REPORT INFORMATION
  Report Type: 
  Country: None (occurrence: None)
  Receive Date: 20120124
  Receipt Date: 20120124
  Transmission Date: 20120608
  Serious: Yes (Hospitalization)
  Sender: FDA-Public Use
  Company Number: None

PATIENT
  Age: 80 Year
  Sex: Female
  Weight: 80 kg

DRUGS (8)
  1. WARFARIN SODIUM [Concomitant]
  2. CLOPIDOGREL [Concomitant]
     Route: 048
  3. FLUTICASONE/SALMETEROL 100/50 [Concomitant]
     Route: 050
  4. ASPIRIN [Concomitant]
     Route: 048
  5. FENOFIBRATE [Concomitant]
     Route: 048
  6. ESCITALOPRAM [Concomitant]
     Route: 048
  7. FUROSEMIDE [Concomitant]
     Route: 048
  8. WARFARIN SODIUM [Suspect]
     Indication: ANTICOAGULANT THERAPY
     Dosage: 5 MG ALT WITH 5.5 MG
     Route: 048

REACTIONS (4)
  - GASTRIC ULCER [None]
  - MELAENA [None]
  - DRUG INTERACTION [None]
  - INTERNATIONAL NORMALISED RATIO INCREASED [None]
